FAERS Safety Report 5483272-4 (Version None)
Quarter: 2007Q4

REPORT INFORMATION
  Report Type: 
  Country: None (occurrence: None)
  Receive Date: 20071012
  Receipt Date: 20071003
  Transmission Date: 20080405
  Serious: Yes (Other)
  Sender: FDA-Public Use
  Company Number: PHBS2007FR16475

PATIENT
  Age: 28 Year
  Sex: Male

DRUGS (1)
  1. IMATINIB [Suspect]
     Indication: GASTROINTESTINAL STROMAL TUMOUR
     Dosage: 800 MG/D
     Route: 065

REACTIONS (3)
  - BONE MARROW NECROSIS [None]
  - DRUG RESISTANCE [None]
  - STRESS FRACTURE [None]
